FAERS Safety Report 6537437-0 (Version None)
Quarter: 2010Q1

REPORT INFORMATION
  Report Type: 
  Country: None (occurrence: None)
  Receive Date: 20100110
  Receipt Date: 20091229
  Transmission Date: 20100710
  Serious: Yes (Death)
  Sender: FDA-Public Use
  Company Number: CERZ-1001086

PATIENT
  Age: 31 Month
  Sex: Female
  Weight: 10 kg

DRUGS (1)
  1. CEREZYME (IMIGLUCERASE) POWDER FOR [Suspect]
     Indication: GAUCHER'S DISEASE
     Dosage: 800 U, Q2W, INTRAVENOUS
     Route: 042
     Dates: end: 20091214

REACTIONS (3)
  - HAEMOPTYSIS [None]
  - LUNG INFECTION [None]
  - SEPSIS [None]
